FAERS Safety Report 5310357-5 (Version None)
Quarter: 2007Q2

REPORT INFORMATION
  Report Type: 
  Country: None (occurrence: None)
  Receive Date: 20070423
  Receipt Date: 20070403
  Transmission Date: 20071010
  Serious: Yes (Death)
  Sender: FDA-Public Use
  Company Number: 6031674

PATIENT
  Age: 50 Year
  Sex: Male

DRUGS (2)
  1. LOVAN (FLUOXETINE HYDROCHLORIDE) [Suspect]
     Indication: INTENTIONAL OVERDOSE
     Dates: end: 20061201
  2. BENZODIAZEPINE [Suspect]
     Indication: INTENTIONAL OVERDOSE

REACTIONS (1)
  - MULTIPLE DRUG OVERDOSE INTENTIONAL [None]
